FAERS Safety Report 9689086 (Version 2)
Quarter: 2013Q4

REPORT INFORMATION
  Report Type: Spontaneous
  Country: JP (occurrence: JP)
  Receive Date: 20131114
  Receipt Date: 20131127
  Transmission Date: 20140711
  Serious: Yes (Hospitalization)
  Sender: FDA-Public Use
  Company Number: JP-BRISTOL-MYERS SQUIBB COMPANY-19811025

PATIENT
  Age: 78 Year
  Sex: Male

DRUGS (21)
  1. METGLUCO [Suspect]
     Indication: DIABETES MELLITUS
     Dosage: 07JUN2013-UNK; 13JUN2013-27JUN2013?2 / D
     Route: 048
     Dates: start: 20130607, end: 20130627
  2. JANUVIA [Concomitant]
     Indication: DIABETES MELLITUS
     Route: 048
     Dates: start: 20130608, end: 20130703
  3. ACTOS [Concomitant]
     Indication: DIABETES MELLITUS
     Route: 048
     Dates: start: 20130621
  4. MIGLITOL [Concomitant]
     Indication: DIABETES MELLITUS
     Route: 048
     Dates: start: 20130608
  5. BAYASPIRIN [Concomitant]
     Indication: CEREBRAL INFARCTION
     Route: 048
  6. FLUITRAN [Concomitant]
     Indication: HYPERTENSION
     Route: 048
  7. ALESION [Concomitant]
     Route: 048
  8. DOXAZOSIN MESILATE [Concomitant]
     Indication: HYPERTENSION
     Route: 048
  9. SENNA LEAF [Concomitant]
     Indication: CONSTIPATION
     Route: 048
  10. NEXIUM [Concomitant]
     Indication: CEREBRAL INFARCTION
     Route: 048
     Dates: start: 20130329
  11. PREDONINE [Concomitant]
     Indication: POLYMYALGIA RHEUMATICA
     Dosage: 12APR2013-17.5MG;?20JUN2013-15MG;?05JUL2013-15MG?24JUL2013-12.5MG?14AUG2013-5MG
     Route: 048
     Dates: start: 20130329
  12. MEMANTINE HCL [Concomitant]
     Indication: DEMENTIA ALZHEIMER^S TYPE
     Route: 048
     Dates: start: 20130329
  13. MUCODYNE [Concomitant]
     Indication: CHRONIC OBSTRUCTIVE PULMONARY DISEASE
     Route: 048
     Dates: start: 20130509
  14. SPIRIVA [Concomitant]
     Indication: CHRONIC OBSTRUCTIVE PULMONARY DISEASE
     Route: 055
     Dates: start: 20130509
  15. FUNGIZONE [Concomitant]
     Indication: ORAL CANDIDIASIS
     Route: 048
     Dates: start: 20130608, end: 20130615
  16. ITRIZOLE [Concomitant]
     Indication: SYSTEMIC MYCOSIS
     Route: 048
     Dates: start: 20130610, end: 20130618
  17. CRESTOR [Concomitant]
     Indication: HYPERLIPIDAEMIA
     Route: 048
     Dates: start: 20130614
  18. FEBUXOSTAT [Concomitant]
     Indication: HYPERURICAEMIA
     Route: 048
     Dates: start: 20130618
  19. BAKTAR [Concomitant]
     Indication: POLYMYALGIA RHEUMATICA
     Route: 048
     Dates: start: 20130618
  20. KAYEXALATE [Concomitant]
     Indication: HYPERKALAEMIA
     Route: 048
     Dates: start: 20130627, end: 20130705
  21. REPAGLINIDE [Concomitant]
     Indication: DIABETES MELLITUS
     Route: 048
     Dates: start: 20130812

REACTIONS (1)
  - Decreased appetite [Recovered/Resolved]
